FAERS Safety Report 5906583-4 (Version None)
Quarter: 2008Q4

REPORT INFORMATION
  Report Type: 
  Country: None (occurrence: None)
  Receive Date: 20081002
  Receipt Date: 20080925
  Transmission Date: 20090506
  Serious: No
  Sender: FDA-Public Use
  Company Number: US-B.I. PHARMACEUTICALS,INC./RIDGEFIELD-2008-BP-14977BP

PATIENT
  Sex: Female

DRUGS (2)
  1. ATROVENT HFA [Suspect]
     Indication: ASTHMA
     Dosage: 68MCG
     Route: 055
     Dates: start: 20080201, end: 20080701
  2. ATROVENT HFA [Suspect]
     Dosage: 136MCG
     Route: 055
     Dates: start: 20080701

REACTIONS (2)
  - ASTHMA [None]
  - RASH GENERALISED [None]
